FAERS Safety Report 17075360 (Version 1)
Quarter: 2019Q4

REPORT INFORMATION
  Report Type: Spontaneous
  Country: US (occurrence: US)
  Receive Date: 20191126
  Receipt Date: 20191126
  Transmission Date: 20200122
  Serious: No
  Sender: FDA-Public Use
  Company Number: US-PFIZER INC-2019446103

PATIENT
  Age: 90 Year
  Sex: Female
  Weight: 81.7 kg

DRUGS (1)
  1. PREMARIN [Suspect]
     Active Substance: ESTROGENS, CONJUGATED
     Indication: URINARY TRACT INFECTION
     Dosage: 0.5 G, DAILY
     Route: 067

REACTIONS (3)
  - Off label use [Unknown]
  - Vulvovaginal dryness [Unknown]
  - Product use in unapproved indication [Unknown]
